FAERS Safety Report 25417266 (Version 1)
Quarter: 2025Q2

REPORT INFORMATION
  Report Type: Spontaneous
  Country: US (occurrence: None)
  Receive Date: 20250603
  Receipt Date: 20250603
  Transmission Date: 20250716
  Serious: Yes (Hospitalization)
  Sender: FDA-CTU
  Company Number: None

PATIENT
  Age: 75 Year
  Sex: Female

DRUGS (3)
  1. TOBRAMYCIN [Suspect]
     Active Substance: TOBRAMYCIN
     Dosage: FREQUENCY : TWICE A DAY;?
     Route: 055
     Dates: start: 20241228, end: 20250104
  2. ALBUTEROL [Concomitant]
     Active Substance: ALBUTEROL
  3. SODIUM CHLORIDE 7% NEBULIZER SOLN [Concomitant]

REACTIONS (3)
  - Seizure [None]
  - Fall [None]
  - Haemorrhage [None]

NARRATIVE: CASE EVENT DATE: 20250104
